FAERS Safety Report 9964391 (Version 1)
Quarter: 2014Q1

REPORT INFORMATION
  Report Type: Spontaneous
  Country: JP (occurrence: JP)
  Receive Date: 20140305
  Receipt Date: 20140305
  Transmission Date: 20141002
  Serious: Yes (Other)
  Sender: FDA-Public Use
  Company Number: JP-GLAXOSMITHKLINE-B0973613A

PATIENT
  Sex: 0

DRUGS (1)
  1. ALKERAN [Suspect]
     Indication: PREMEDICATION
     Dosage: 70MGM2 PER DAY
     Route: 042

REACTIONS (1)
  - Pancreatitis acute [Recovering/Resolving]
